FAERS Safety Report 5880197-7 (Version None)
Quarter: 2008Q3

REPORT INFORMATION
  Report Type: 
  Country: None (occurrence: None)
  Receive Date: 20080910
  Receipt Date: 20080910
  Transmission Date: 20090109
  Serious: Yes (Hospitalization, Other)
  Sender: FDA-Public Use
  Company Number: None

PATIENT
  Age: 32 Year
  Sex: Female
  Weight: 65.7716 kg

DRUGS (1)
  1. TOPAMAX [Suspect]
     Indication: MIGRAINE
     Dosage: 1 TABLET ONCE DAILY AT BED PO
     Route: 048
     Dates: start: 20080812, end: 20080819

REACTIONS (12)
  - ABNORMAL SENSATION IN EYE [None]
  - ANGLE CLOSURE GLAUCOMA [None]
  - BLINDNESS TRANSIENT [None]
  - DIPLOPIA [None]
  - DIZZINESS [None]
  - DRY MOUTH [None]
  - EYE PAIN [None]
  - ILL-DEFINED DISORDER [None]
  - MYOPIA [None]
  - PARAESTHESIA [None]
  - THERAPEUTIC AGENT TOXICITY [None]
  - VISION BLURRED [None]
